FAERS Safety Report 7743872-5 (Version None)
Quarter: 2011Q3

REPORT INFORMATION
  Report Type: 
  Country: None (occurrence: None)
  Receive Date: 20110912
  Receipt Date: 20110722
  Transmission Date: 20111222
  Serious: Yes (Death)
  Sender: FDA-Public Use
  Company Number: US-GLAXOSMITHKLINE-A0938406A

PATIENT
  Age: 50 Year
  Sex: Female
  Weight: 87.7 kg

DRUGS (1)
  1. HYCAMTIN [Suspect]
     Indication: PRODUCT USED FOR UNKNOWN INDICATION
     Dosage: 4MG UNKNOWN
     Route: 042
     Dates: start: 20110218, end: 20110301

REACTIONS (2)
  - DISEASE PROGRESSION [None]
  - DEATH [None]
